FAERS Safety Report 17204360 (Version 4)
Quarter: 2020Q3

REPORT INFORMATION
  Report Type: Report from Study
  Country: BR (occurrence: BR)
  Receive Date: 20191226
  Receipt Date: 20200929
  Transmission Date: 20201102
  Serious: Yes (Other)
  Sender: FDA-Public Use
  Company Number: BR-JNJFOC-20181015183

PATIENT
  Age: 6 Decade
  Sex: Female
  Weight: 78 kg

DRUGS (4)
  1. MESALAZINE [Concomitant]
     Active Substance: MESALAMINE
     Route: 065
  2. DIPYRONE [Concomitant]
     Active Substance: DIPYRONE
     Route: 065
  3. INFLIXIMAB, RECOMBINANT [Suspect]
     Active Substance: INFLIXIMAB
     Indication: CROHN^S DISEASE
     Dosage: THERAPY START DATE ALSO REPORTED AS 09/OCT/2008
     Route: 042
     Dates: start: 20060101, end: 201111
  4. INFLIXIMAB, RECOMBINANT [Suspect]
     Active Substance: INFLIXIMAB
     Route: 042

REACTIONS (4)
  - Bronchitis [Unknown]
  - Crohn^s disease [Not Recovered/Not Resolved]
  - Wound [Not Recovered/Not Resolved]
  - Pustule [Unknown]

NARRATIVE: CASE EVENT DATE: 2018
